FAERS Safety Report 9047585 (Version 3)
Quarter: 2013Q2

REPORT INFORMATION
  Report Type: Spontaneous
  Country: US (occurrence: US)
  Receive Date: 20130204
  Receipt Date: 20130404
  Transmission Date: 20140414
  Serious: Yes (Other)
  Sender: FDA-Public Use
  Company Number: US-AMGEN-USASP2013004350

PATIENT
  Age: 18 Year
  Sex: Female
  Weight: 54.42 kg

DRUGS (2)
  1. ENBREL [Suspect]
     Indication: PSORIASIS
     Dosage: 50 MG, QWK
     Dates: start: 20120710, end: 20130119
  2. TACLONEX [Concomitant]
     Indication: PSORIASIS
     Dosage: QD
     Route: 061

REACTIONS (2)
  - Lupus-like syndrome [Unknown]
  - Alopecia [Not Recovered/Not Resolved]
